FAERS Safety Report 5165155-2 (Version None)
Quarter: 2006Q4

REPORT INFORMATION
  Report Type: 
  Country: None (occurrence: None)
  Receive Date: 20061205
  Receipt Date: 20061127
  Transmission Date: 20070319
  Serious: Yes (Disabling)
  Sender: FDA-Public Use
  Company Number: JP-MERCK-0612USA00132

PATIENT
  Age: 47 Year
  Sex: Male

DRUGS (4)
  1. PEPCID RPD [Suspect]
     Route: 048
     Dates: start: 20050121
  2. LIPITOR [Suspect]
     Indication: HYPERCHOLESTEROLAEMIA
     Route: 048
     Dates: start: 20040224, end: 20061117
  3. SELBEX [Suspect]
     Route: 048
     Dates: start: 20040510, end: 20060228
  4. DEPAS [Suspect]
     Route: 048
     Dates: start: 20040521, end: 20060228

REACTIONS (3)
  - BLOOD CREATINE PHOSPHOKINASE INCREASED [None]
  - MYOGLOBIN BLOOD INCREASED [None]
  - MYOGLOBIN URINE PRESENT [None]
